FAERS Safety Report 5756053-1 (Version None)
Quarter: 2008Q2

REPORT INFORMATION
  Report Type: 
  Country: None (occurrence: None)
  Receive Date: 20080602
  Receipt Date: 20080527
  Transmission Date: 20081010
  Serious: Yes (Other)
  Sender: FDA-Public Use
  Company Number: PHEH2008US04873

PATIENT

DRUGS (1)
  1. EXJADE [Suspect]
     Dosage: 20 MG/KG

REACTIONS (2)
  - SKIN NECROSIS [None]
  - TOXIC EPIDERMAL NECROLYSIS [None]
